FAERS Safety Report 18179820 (Version 3)
Quarter: 2020Q4

REPORT INFORMATION
  Report Type: Report from Study
  Country: HN (occurrence: HN)
  Receive Date: 20200821
  Receipt Date: 20201001
  Transmission Date: 20210113
  Serious: Yes (Other)
  Sender: FDA-Public Use
  Company Number: NVSC2020HN227782

PATIENT
  Sex: Female
  Weight: 85.27 kg

DRUGS (2)
  1. CO-DIOVAN [Suspect]
     Active Substance: HYDROCHLOROTHIAZIDE\VALSARTAN
     Dosage: 160/12.5 MG SEVERAL YEARS AGO
     Route: 065
  2. CO-DIOVAN [Suspect]
     Active Substance: HYDROCHLOROTHIAZIDE\VALSARTAN
     Indication: HYPERTENSION
     Dosage: 320/25 MG
     Route: 065

REACTIONS (5)
  - Blood cholesterol increased [Unknown]
  - Dementia Alzheimer^s type [Not Recovered/Not Resolved]
  - Blood triglycerides increased [Unknown]
  - Amnesia [Unknown]
  - Movement disorder [Unknown]

NARRATIVE: CASE EVENT DATE: 2014
